FAERS Safety Report 6220857-1 (Version None)
Quarter: 2009Q2

REPORT INFORMATION
  Report Type: 
  Country: None (occurrence: None)
  Receive Date: 20090610
  Receipt Date: 20090601
  Transmission Date: 20091009
  Serious: Yes (Hospitalization)
  Sender: FDA-Public Use
  Company Number: PHBS2007ZA07113

PATIENT
  Age: 5 Year
  Sex: Female

DRUGS (1)
  1. EXJADE [Suspect]
     Route: 065

REACTIONS (4)
  - BRONCHITIS [None]
  - DIARRHOEA [None]
  - INFLUENZA LIKE ILLNESS [None]
  - RASH [None]
